FAERS Safety Report 24254375 (Version 1)
Quarter: 2024Q3

REPORT INFORMATION
  Report Type: Spontaneous
  Country: US (occurrence: None)
  Receive Date: 20240826
  Receipt Date: 20240826
  Transmission Date: 20241017
  Serious: No
  Sender: Public
  Company Number: None

PATIENT
  Age: 49 Year
  Sex: Male

DRUGS (1)
  1. HUMIRA [Suspect]
     Active Substance: ADALIMUMAB
     Indication: Hidradenitis
     Dosage: OTHER FREQUENCY : EVERY2WKSASDIR;?
     Route: 058
     Dates: start: 202404

REACTIONS (4)
  - Pain [None]
  - Inflammation [None]
  - Pyrexia [None]
  - Infected skin ulcer [None]
